FAERS Safety Report 19677227 (Version 2)
Quarter: 2021Q3

REPORT INFORMATION
  Report Type: Spontaneous
  Country: IT (occurrence: IT)
  Receive Date: 20210809
  Receipt Date: 20210812
  Transmission Date: 20211014
  Serious: Yes (Hospitalization, Other)
  Sender: FDA-Public Use
  Company Number: IT-SA-2021SA255830

PATIENT
  Age: 89 Year
  Sex: Female
  Weight: 42 kg

DRUGS (1)
  1. CLEXANE [Suspect]
     Active Substance: ENOXAPARIN SODIUM
     Indication: ATRIAL FIBRILLATION
     Dosage: 8 KIU, QD
     Route: 058
     Dates: start: 20210304, end: 20210722

REACTIONS (3)
  - Skin necrosis [Recovered/Resolved]
  - Anaemia [Recovered/Resolved]
  - Skin swelling [Recovered/Resolved]

NARRATIVE: CASE EVENT DATE: 20210517
